FAERS Safety Report 18766801 (Version 1)
Quarter: 2021Q1

REPORT INFORMATION
  Report Type: Spontaneous
  Country: US (occurrence: US)
  Receive Date: 20210121
  Receipt Date: 20210121
  Transmission Date: 20210419
  Serious: No
  Sender: FDA-Public Use
  Company Number: US-SA-2021SA017223

PATIENT
  Age: 72 Year
  Sex: Female

DRUGS (6)
  1. DIAZEPAM. [Concomitant]
     Active Substance: DIAZEPAM
  2. TACROLIMUS. [Concomitant]
     Active Substance: TACROLIMUS
  3. GABAPENTIN. [Concomitant]
     Active Substance: GABAPENTIN
  4. LISINOPRIL. [Concomitant]
     Active Substance: LISINOPRIL
  5. VICTOZA [Concomitant]
     Active Substance: LIRAGLUTIDE
  6. DUPIXENT [Suspect]
     Active Substance: DUPILUMAB
     Indication: DERMATITIS ATOPIC
     Dosage: 300 MG, QOW
     Route: 058
     Dates: start: 20201111

REACTIONS (1)
  - Dermatitis atopic [Unknown]

NARRATIVE: CASE EVENT DATE: 20210109
